FAERS Safety Report 18691668 (Version 1)
Quarter: 2021Q1

REPORT INFORMATION
  Report Type: Spontaneous
  Country: FR (occurrence: FR)
  Receive Date: 20210102
  Receipt Date: 20210102
  Transmission Date: 20210419
  Serious: Yes (Other)
  Sender: FDA-Public Use
  Company Number: FR-AUROBINDO-AUR-APL-2020-063487

PATIENT
  Age: 25 Year
  Sex: Female
  Weight: 59 kg

DRUGS (1)
  1. PAROXETINE ARROW 20 MG FILM?COATED TABLETS [Suspect]
     Active Substance: PAROXETINE
     Indication: DEPRESSION
     Dosage: UNK
     Route: 048
     Dates: start: 20200923

REACTIONS (6)
  - Vertigo [Recovering/Resolving]
  - Nausea [Recovering/Resolving]
  - Affective disorder [Recovering/Resolving]
  - Chills [Recovering/Resolving]
  - Drug withdrawal syndrome [Recovered/Resolved with Sequelae]
  - Night sweats [Recovering/Resolving]

NARRATIVE: CASE EVENT DATE: 20201207
